FAERS Safety Report 9548315 (Version 1)
Quarter: 2013Q3

REPORT INFORMATION
  Report Type: Spontaneous
  Country: US (occurrence: None)
  Receive Date: 20130923
  Receipt Date: 20130923
  Transmission Date: 20140515
  Serious: Yes (Hospitalization)
  Sender: FDA-Public Use
  Company Number: None

PATIENT
  Age: 82 Year
  Sex: Male
  Weight: 91.4 kg

DRUGS (1)
  1. ALBUTEROL\IPRATROPIUM [Suspect]
     Indication: PNEUMONIA
     Dosage: 3 ML, OTHER, INHALE
     Route: 055
     Dates: start: 20130905, end: 20130907

REACTIONS (1)
  - Atrial fibrillation [None]
